FAERS Safety Report 9134056 (Version 1)
Quarter: 2013Q1

REPORT INFORMATION
  Report Type: Spontaneous
  Country: US (occurrence: US)
  Receive Date: 20130304
  Receipt Date: 20130304
  Transmission Date: 20140127
  Serious: No
  Sender: FDA-Public Use
  Company Number: US-009507513-1302USA010906

PATIENT
  Sex: Female

DRUGS (2)
  1. LOSARTAN POTASSIUM (+) HYDROCHLOROTHIAZIDE [Suspect]
     Dosage: UNK
     Route: 048
     Dates: start: 20120727
  2. LOSARTAN POTASSIUM (+) HYDROCHLOROTHIAZIDE [Suspect]
     Dosage: UNK
     Route: 048
     Dates: start: 2013

REACTIONS (6)
  - Alopecia [Unknown]
  - Depression [Unknown]
  - Local swelling [Unknown]
  - Joint swelling [Unknown]
  - Swollen tongue [Unknown]
  - Hot flush [Unknown]
